FAERS Safety Report 6012463-9 (Version None)
Quarter: 2008Q4

REPORT INFORMATION
  Report Type: 
  Country: None (occurrence: None)
  Receive Date: 20081216
  Receipt Date: 20080611
  Transmission Date: 20090506
  Serious: Yes (Other)
  Sender: FDA-Public Use
  Company Number: US-WYE-H04517608

PATIENT
  Age: 50 Year
  Weight: 65.83 kg

DRUGS (2)
  1. EFFEXOR XR [Suspect]
     Indication: ANXIETY
     Dosage: 37.5 MG 1X PER 1 DAY, ORAL
     Route: 048
     Dates: start: 20080501, end: 20080501
  2. ATENOLOL [Concomitant]

REACTIONS (2)
  - ABNORMAL SENSATION IN EYE [None]
  - EYE PAIN [None]
